FAERS Safety Report 13491901 (Version 8)
Quarter: 2024Q1

REPORT INFORMATION
  Report Type: Report from Study
  Country: AR (occurrence: AR)
  Receive Date: 20170427
  Receipt Date: 20240301
  Transmission Date: 20240409
  Serious: Yes (Other)
  Sender: FDA-Public Use
  Company Number: PHHY2017AR060925

PATIENT
  Sex: Female

DRUGS (5)
  1. ILARIS [Suspect]
     Active Substance: CANAKINUMAB
     Indication: Cryopyrin associated periodic syndrome
     Dosage: 1 DOSAGE FORM (150 (UNIT UNKNOWN) EVERY 8 WEEKS
     Route: 065
  2. ILARIS [Suspect]
     Active Substance: CANAKINUMAB
     Indication: Muckle-Wells syndrome
     Dosage: 1 DOSAGE FORM, Q4W (150 (UNITS UNKNOWN)
     Route: 065
  3. ILARIS [Suspect]
     Active Substance: CANAKINUMAB
     Indication: Chronic infantile neurological cutaneous and articular syndrome
     Dosage: 150 MG, QMO
     Route: 058
     Dates: start: 20101201
  4. ILARIS [Suspect]
     Active Substance: CANAKINUMAB
     Dosage: 150 MG, QMO
     Route: 058
     Dates: start: 20170421
  5. ILARIS [Suspect]
     Active Substance: CANAKINUMAB
     Dosage: 150 MG, QMO
     Route: 058

REACTIONS (11)
  - Chronic infantile neurological cutaneous and articular syndrome [Recovering/Resolving]
  - Arthralgia [Recovering/Resolving]
  - Cryopyrin associated periodic syndrome [Recovering/Resolving]
  - Pain [Recovering/Resolving]
  - Condition aggravated [Recovering/Resolving]
  - Renal failure [Unknown]
  - Renal impairment [Unknown]
  - Protein urine [Unknown]
  - Peripheral swelling [Unknown]
  - Anaemia [Unknown]
  - Nocturia [Recovered/Resolved]

NARRATIVE: CASE EVENT DATE: 20150101
